FAERS Safety Report 9865630 (Version 2)
Quarter: 2014Q1

REPORT INFORMATION
  Report Type: Spontaneous
  Country: US (occurrence: US)
  Receive Date: 20140203
  Receipt Date: 20140203
  Transmission Date: 20141002
  Serious: No
  Sender: FDA-Public Use
  Company Number: US-ALLERGAN-1306142US

PATIENT
  Sex: Male

DRUGS (2)
  1. RESTASIS [Suspect]
     Indication: DRY EYE
  2. EYE DROPS NOS [Concomitant]
     Indication: DRY EYE

REACTIONS (2)
  - Medication residue present [Unknown]
  - Instillation site pain [Recovered/Resolved]
